FAERS Safety Report 18977669 (Version 1)
Quarter: 2021Q1

REPORT INFORMATION
  Report Type: Spontaneous
  Country: BR (occurrence: BR)
  Receive Date: 20210306
  Receipt Date: 20210306
  Transmission Date: 20210420
  Serious: Yes (Other)
  Sender: FDA-Public Use
  Company Number: NVSC2021BR050501

PATIENT
  Sex: Female

DRUGS (2)
  1. ESTRADOT [Suspect]
     Active Substance: ESTRADIOL
     Indication: HORMONE REPLACEMENT THERAPY
     Dosage: UNK, (ABOUT 10 YEARS AGO)
     Route: 065
  2. ESTRADOT [Suspect]
     Active Substance: ESTRADIOL
     Indication: RHEUMATOID ARTHRITIS
     Dosage: UNK (8TTS BR)
     Route: 065

REACTIONS (5)
  - Rheumatoid arthritis [Unknown]
  - Product availability issue [Unknown]
  - Product use in unapproved indication [Unknown]
  - Emotional distress [Unknown]
  - Anxiety [Unknown]
